FAERS Safety Report 11544944 (Version 1)
Quarter: 2015Q3

REPORT INFORMATION
  Report Type: Spontaneous
  Country: US (occurrence: None)
  Receive Date: 20150923
  Receipt Date: 20150923
  Transmission Date: 20151125
  Serious: Yes (Other)
  Sender: FDA-Public Use
  Company Number: None

PATIENT
  Age: 51 Year
  Sex: Female

DRUGS (5)
  1. METHADONE [Suspect]
     Active Substance: METHADONE HYDROCHLORIDE
     Indication: PAIN
     Dosage: 2 TABLET?EVERY 4 HOURS?ORAL
     Route: 048
     Dates: start: 20150909, end: 20150922
  2. TEMAZEPAM. [Concomitant]
     Active Substance: TEMAZEPAM
  3. HYDROMORPHONE [Concomitant]
     Active Substance: HYDROMORPHONE
  4. PHENOBARBITAL. [Concomitant]
     Active Substance: PHENOBARBITAL
  5. CLONAZEPAM. [Concomitant]
     Active Substance: CLONAZEPAM

REACTIONS (5)
  - Product quality issue [None]
  - Blood glucose decreased [None]
  - Product substitution issue [None]
  - Dizziness [None]
  - Vomiting [None]

NARRATIVE: CASE EVENT DATE: 20150922
